FAERS Safety Report 4686845-1 (Version None)
Quarter: 2005Q2

REPORT INFORMATION
  Report Type: 
  Country: None (occurrence: None)
  Receive Date: 20050609
  Receipt Date: 20020910
  Transmission Date: 20051028
  Serious: Yes (Hospitalization, Disabling)
  Sender: FDA-Public Use
  Company Number: US-MERCK-0209USA00998

PATIENT
  Age: 55 Year
  Sex: Male
  Weight: 99 kg

DRUGS (6)
  1. VIOXX [Suspect]
     Indication: OSTEOARTHRITIS
     Route: 048
     Dates: start: 20000509, end: 20000601
  2. VIOXX [Suspect]
     Route: 048
     Dates: start: 20000601, end: 20010701
  3. VIOXX [Suspect]
     Indication: ARTHRITIS
     Route: 048
     Dates: start: 20000509, end: 20000601
  4. VIOXX [Suspect]
     Route: 048
     Dates: start: 20000601, end: 20010701
  5. PREVACID [Concomitant]
     Indication: GASTROOESOPHAGEAL REFLUX DISEASE
     Route: 065
  6. ALLOPURINOL [Concomitant]
     Indication: GOUT
     Route: 065

REACTIONS (15)
  - ACUTE SINUSITIS [None]
  - AORTIC VALVE INCOMPETENCE [None]
  - AORTIC VALVE SCLEROSIS [None]
  - BLOOD PRESSURE INCREASED [None]
  - BRONCHITIS ACUTE [None]
  - CEREBELLAR INFARCTION [None]
  - DYSURIA [None]
  - EPIDERMAL NAEVUS [None]
  - HAEMATOSPERMIA [None]
  - HAEMORRHOIDAL HAEMORRHAGE [None]
  - MICTURITION URGENCY [None]
  - NEPHROLITHIASIS [None]
  - PROSTATISM [None]
  - SINUSITIS [None]
  - VOMITING [None]
